FAERS Safety Report 17012911 (Version 2)
Quarter: 2020Q3

REPORT INFORMATION
  Report Type: Spontaneous
  Country: CA (occurrence: CA)
  Receive Date: 20191109
  Receipt Date: 20200720
  Transmission Date: 20201102
  Serious: Yes (Other)
  Sender: FDA-Public Use
  Company Number: CA-TEVA-2019-CA-1133056

PATIENT
  Age: 1 Year
  Sex: Female

DRUGS (1)
  1. CEPHALEXIN. [Suspect]
     Active Substance: CEPHALEXIN
     Indication: LYMPH GLAND INFECTION
     Route: 048

REACTIONS (2)
  - Diarrhoea [Unknown]
  - Flatulence [Unknown]
